FAERS Safety Report 14989331 (Version 1)
Quarter: 2018Q2

REPORT INFORMATION
  Report Type: Spontaneous
  Country: US (occurrence: US)
  Receive Date: 20180608
  Receipt Date: 20180608
  Transmission Date: 20180711
  Serious: Yes (Other)
  Sender: FDA-Public Use
  Company Number: US-LYNE LABORATORIES INC.-2049167

PATIENT
  Age: 62 Year
  Sex: Female
  Weight: 63.64 kg

DRUGS (12)
  1. CLONAZEPAM. [Concomitant]
     Active Substance: CLONAZEPAM
  2. METOPROLOL. [Concomitant]
     Active Substance: METOPROLOL
  3. FLUOCINOLONE ACETONIDE TOPICAL OIL, 0.01% (BODY OIL) [Suspect]
     Active Substance: FLUOCINOLONE ACETONIDE
     Indication: PSORIASIS
     Route: 061
  4. PS-ESTRIOL [Concomitant]
  5. CALCIUM [Concomitant]
     Active Substance: CALCIUM
  6. MAGNESIUM [Concomitant]
     Active Substance: MAGNESIUM
  7. VITAMIN D [Concomitant]
     Active Substance: CHOLECALCIFEROL
  8. FISH OIL [Concomitant]
     Active Substance: FISH OIL
  9. TRAZODONE [Concomitant]
     Active Substance: TRAZODONE HYDROCHLORIDE
  10. LORAZEPAM. [Concomitant]
     Active Substance: LORAZEPAM
  11. CO-Q 10 [Concomitant]
     Active Substance: UBIDECARENONE
  12. RYTARY [Concomitant]
     Active Substance: CARBIDOPA\LEVODOPA

REACTIONS (3)
  - Visual field defect [None]
  - Visual impairment [None]
  - Retinal disorder [Not Recovered/Not Resolved]

NARRATIVE: CASE EVENT DATE: 2017
